FAERS Safety Report 9031146 (Version 2)
Quarter: 2013Q2

REPORT INFORMATION
  Report Type: Spontaneous
  Country: IT (occurrence: IT)
  Receive Date: 20130123
  Receipt Date: 20130410
  Transmission Date: 20140414
  Serious: Yes (Death, Other)
  Sender: FDA-Public Use
  Company Number: IT-SPECTRUM PHARMACEUTICALS, INC.-13-Z-IT-00039

PATIENT
  Age: 62 Year
  Sex: Female

DRUGS (2)
  1. ZEVALIN [Suspect]
     Indication: B-CELL LYMPHOMA REFRACTORY
     Dosage: 185 MBQ, UNK
     Route: 042
  2. RITUXIMAB [Suspect]
     Indication: B-CELL LYMPHOMA REFRACTORY
     Dosage: 250 MG/M2, UNK
     Route: 042

REACTIONS (4)
  - Pulmonary oedema [Fatal]
  - Bone marrow failure [Unknown]
  - Febrile neutropenia [Unknown]
  - Diarrhoea [Unknown]
